FAERS Safety Report 26040230 (Version 2)
Quarter: 2025Q4

REPORT INFORMATION
  Report Type: Spontaneous
  Country: TH (occurrence: TH)
  Receive Date: 20251113
  Receipt Date: 20251127
  Transmission Date: 20260118
  Serious: Yes (Life-Threatening, Hospitalization, Other)
  Sender: RANBAXY
  Company Number: TH-SUN PHARMACEUTICAL INDUSTRIES LTD-2025R1-535275

PATIENT
  Sex: Male

DRUGS (1)
  1. BUPROPION [Suspect]
     Active Substance: BUPROPION
     Indication: Major depression
     Dosage: 29 DOSAGE FORM
     Route: 048

REACTIONS (8)
  - Overdose [Recovering/Resolving]
  - Toxicity to various agents [Unknown]
  - Status epilepticus [Recovered/Resolved]
  - Electrocardiogram QT prolonged [Unknown]
  - Loss of consciousness [Recovering/Resolving]
  - Dyskinesia [Unknown]
  - Seizure [Recovering/Resolving]
  - Suicide attempt [Unknown]
